FAERS Safety Report 25029170 (Version 2)
Quarter: 2025Q4

REPORT INFORMATION
  Report Type: Spontaneous
  Country: EU (occurrence: EU)
  Receive Date: 20250303
  Receipt Date: 20251029
  Transmission Date: 20260119
  Serious: Yes (Other)
  Sender: TWI PHARMACEUTICALS
  Company Number: EU-TWI PHARMACEUTICAL, INC-20250200598

PATIENT
  Age: 38 Year
  Sex: Male

DRUGS (2)
  1. TESTOSTERONE [Suspect]
     Active Substance: TESTOSTERONE
     Indication: Blood testosterone decreased
     Dosage: UNK
     Route: 065
  2. TESTOSTERONE [Suspect]
     Active Substance: TESTOSTERONE
     Dosage: 1000 UNK, MG/MO (INJECTION)
     Route: 030

REACTIONS (6)
  - Loss of consciousness [Recovering/Resolving]
  - Disturbance in attention [Recovering/Resolving]
  - Myalgia [Recovering/Resolving]
  - Blood testosterone increased [Recovering/Resolving]
  - Anxiety [Recovering/Resolving]
  - Fatigue [Recovering/Resolving]
